FAERS Safety Report 7215170-X (Version None)
Quarter: 2011Q1

REPORT INFORMATION
  Report Type: 
  Country: None (occurrence: None)
  Receive Date: 20110107
  Receipt Date: 20101001
  Transmission Date: 20110831
  Serious: No
  Sender: FDA-Public Use
  Company Number: A0884505A

PATIENT
  Age: 37 Year
  Sex: Male

DRUGS (5)
  1. TRILIPIX [Concomitant]
  2. SIRIN [Concomitant]
  3. METFORMIN [Concomitant]
  4. LOVAZA [Suspect]
     Dosage: 1G TWICE PER DAY
     Route: 048
     Dates: start: 20100910
  5. BYETTA [Concomitant]

REACTIONS (3)
  - NAUSEA [None]
  - THIRST [None]
  - TREMOR [None]
